FAERS Safety Report 8230833-5 (Version None)
Quarter: 2012Q1

REPORT INFORMATION
  Report Type: 
  Country: None (occurrence: None)
  Receive Date: 20120323
  Receipt Date: 20120314
  Transmission Date: 20120608
  Serious: Yes (Death)
  Sender: FDA-Public Use
  Company Number: US-CELGENEUS-163-21880-12030967

PATIENT
  Age: 75 Year
  Sex: Male

DRUGS (7)
  1. VANCOMYCIN [Concomitant]
     Route: 065
  2. LEVOFLOXACIN [Concomitant]
     Route: 065
  3. PIPERACILLIN AND TAZOBACTAM [Concomitant]
     Route: 065
  4. REVLIMID [Suspect]
     Indication: MYELODYSPLASTIC SYNDROME
     Route: 048
  5. VORICONAZOLE [Concomitant]
     Route: 065
  6. CEFEPIME [Concomitant]
     Route: 065
  7. AMPHOTERICIN B [Concomitant]
     Indication: ANTIFUNGAL PROPHYLAXIS
     Route: 065

REACTIONS (1)
  - PULMONARY MYCOSIS [None]
